FAERS Safety Report 6307600-2 (Version None)
Quarter: 2009Q3

REPORT INFORMATION
  Report Type: 
  Country: None (occurrence: None)
  Receive Date: 20090812
  Receipt Date: 20090812
  Transmission Date: 20100115
  Serious: Yes (Hospitalization)
  Sender: FDA-Public Use
  Company Number: None

PATIENT
  Sex: Male
  Weight: 85.6 kg

DRUGS (4)
  1. CAMPATH [Suspect]
     Dosage: 90MG
  2. CYCLOPHOSPHAMIDE [Suspect]
     Dosage: 0 MG
  3. PENTOSTATIN [Suspect]
     Dosage: 0 MG
  4. RITUXIMAB (MOAB CSB8 ANTI CD20, CHIMERIC) [Suspect]
     Dosage: 0 MG

REACTIONS (5)
  - ACUTE HEPATIC FAILURE [None]
  - OPPORTUNISTIC INFECTION [None]
  - PLATELET COUNT DECREASED [None]
  - RENAL FAILURE [None]
  - SYSTEMIC CANDIDA [None]
